FAERS Safety Report 20930234 (Version 2)
Quarter: 2022Q2

REPORT INFORMATION
  Report Type: Spontaneous
  Country: US (occurrence: US)
  Receive Date: 20220608
  Receipt Date: 20220620
  Transmission Date: 20220721
  Serious: No
  Sender: FDA-Public Use
  Company Number: US-Blueprint Medicines Corporation-140

PATIENT
  Sex: Male

DRUGS (2)
  1. AYVAKIT [Suspect]
     Active Substance: AVAPRITINIB
     Indication: Gastrointestinal stromal tumour
     Route: 048
     Dates: start: 20220131
  2. LOSARTAN [Concomitant]
     Active Substance: LOSARTAN
     Indication: Fluid retention
     Route: 065

REACTIONS (9)
  - Defaecation urgency [Unknown]
  - Back pain [Unknown]
  - Abnormal dreams [Unknown]
  - Fluid retention [Unknown]
  - Diarrhoea [Unknown]
  - Lacrimation increased [Not Recovered/Not Resolved]
  - Periorbital swelling [Not Recovered/Not Resolved]
  - Hair colour changes [Unknown]
  - Sleep disorder [Unknown]
